FAERS Safety Report 13001054 (Version 1)
Quarter: 2016Q4

REPORT INFORMATION
  Report Type: Report from Study
  Country: GR (occurrence: GR)
  Receive Date: 20161206
  Receipt Date: 20161206
  Transmission Date: 20170207
  Serious: Yes (Other)
  Sender: FDA-Public Use
  Company Number: GR-CLINIGEN GROUP PLC/ CLINIGEN HEALTHCARE LTD-E2B_00001504

PATIENT

DRUGS (2)
  1. ETHYOL [Suspect]
     Active Substance: AMIFOSTINE
     Indication: PRODUCT USED FOR UNKNOWN INDICATION
     Route: 042
  2. ETHYOL [Suspect]
     Active Substance: AMIFOSTINE
     Route: 042

REACTIONS (1)
  - Pulmonary toxicity [Recovered/Resolved]
